FAERS Safety Report 6393031-6 (Version None)
Quarter: 2009Q4

REPORT INFORMATION
  Report Type: 
  Country: None (occurrence: None)
  Receive Date: 20091008
  Receipt Date: 20090928
  Transmission Date: 20100525
  Serious: Yes (Hospitalization, Other)
  Sender: FDA-Public Use
  Company Number: IN-ELI_LILLY_AND_COMPANY-IN200909001463

PATIENT
  Sex: Female
  Weight: 35.5 kg

DRUGS (11)
  1. GEMCITABINE HCL [Suspect]
     Indication: BREAST CANCER METASTATIC
     Dosage: 1000 MG/M2 (ACTUAL DOSE 1237MG) ON DAY 1 AND DAY 8 EVERY 3 WEEKS
     Route: 042
     Dates: start: 20090825
  2. VINFLUNINE [Suspect]
     Indication: BREAST CANCER METASTATIC
     Dosage: 320 MG/M2 (ACTUAL DOSE 395MG) ON DAY 1 EVERY 3 WEEKS
     Route: 042
     Dates: start: 20090825
  3. DULCOLAX [Concomitant]
     Dosage: UNK, UNK
     Dates: start: 20090825, end: 20090901
  4. DEXONA [Concomitant]
     Dates: start: 20090826, end: 20090827
  5. DUPHALAC [Concomitant]
     Dates: start: 20090829, end: 20090830
  6. ONDANSETRON [Concomitant]
     Dates: start: 20090825, end: 20090827
  7. MORPHINE [Concomitant]
     Dates: start: 20090829, end: 20090830
  8. METOCLOPRAMIDE HYDROCHLORIDE [Concomitant]
     Dates: start: 20090831, end: 20090903
  9. TRYPTOMER [Concomitant]
     Dates: start: 20090813, end: 20090824
  10. PANTOPRAZOLE SODIUM [Concomitant]
     Dates: start: 20090818, end: 20090824
  11. CREMAFFIN [Concomitant]
     Dates: start: 20090818, end: 20090824

REACTIONS (5)
  - DYSPNOEA [None]
  - HYPOKALAEMIA [None]
  - ILEUS PARALYTIC [None]
  - INAPPROPRIATE ANTIDIURETIC HORMONE SECRETION [None]
  - NEUTROPENIA [None]
